FAERS Safety Report 24847007 (Version 1)
Quarter: 2025Q1

REPORT INFORMATION
  Report Type: Report from Study
  Country: CN (occurrence: CN)
  Receive Date: 20250115
  Receipt Date: 20250115
  Transmission Date: 20250409
  Serious: Yes (Other)
  Sender: PFIZER
  Company Number: CN-TAKEDA-2024TUS059705

PATIENT
  Age: 36 Year
  Sex: Female
  Weight: 65 kg

DRUGS (10)
  1. BRENTUXIMAB VEDOTIN [Suspect]
     Active Substance: BRENTUXIMAB VEDOTIN
     Indication: Hodgkin^s disease
     Route: 041
     Dates: start: 20240529
  2. BRENTUXIMAB VEDOTIN [Suspect]
     Active Substance: BRENTUXIMAB VEDOTIN
     Route: 041
     Dates: start: 20240621
  3. BRENTUXIMAB VEDOTIN [Suspect]
     Active Substance: BRENTUXIMAB VEDOTIN
     Route: 041
     Dates: start: 20240712
  4. BRENTUXIMAB VEDOTIN [Suspect]
     Active Substance: BRENTUXIMAB VEDOTIN
     Route: 041
     Dates: start: 20240728
  5. BRENTUXIMAB VEDOTIN [Suspect]
     Active Substance: BRENTUXIMAB VEDOTIN
     Route: 041
     Dates: start: 20240822
  6. BRENTUXIMAB VEDOTIN [Suspect]
     Active Substance: BRENTUXIMAB VEDOTIN
     Route: 041
     Dates: start: 20240910
  7. BRENTUXIMAB VEDOTIN [Suspect]
     Active Substance: BRENTUXIMAB VEDOTIN
     Route: 041
     Dates: start: 20240930
  8. BRENTUXIMAB VEDOTIN [Suspect]
     Active Substance: BRENTUXIMAB VEDOTIN
     Route: 041
     Dates: start: 20241018
  9. BRENTUXIMAB VEDOTIN [Suspect]
     Active Substance: BRENTUXIMAB VEDOTIN
     Route: 041
     Dates: start: 20241108
  10. BRENTUXIMAB VEDOTIN [Suspect]
     Active Substance: BRENTUXIMAB VEDOTIN
     Route: 041
     Dates: start: 20241126

REACTIONS (4)
  - Neurotoxicity [Unknown]
  - Hepatic enzyme increased [Unknown]
  - Tachycardia [Unknown]
  - Off label use [Unknown]

NARRATIVE: CASE EVENT DATE: 20240101
